FAERS Safety Report 24448526 (Version 1)
Quarter: 2024Q4

REPORT INFORMATION
  Report Type: Spontaneous
  Country: EG (occurrence: EG)
  Receive Date: 20241017
  Receipt Date: 20241017
  Transmission Date: 20250114
  Serious: Yes (Disabling)
  Sender: HIKMA
  Company Number: EG-HIKMA PHARMACEUTICALS-EG-H14001-24-09570

PATIENT
  Age: 45 Year
  Sex: Female
  Weight: 75 kg

DRUGS (5)
  1. CARBOPLATIN [Suspect]
     Active Substance: CARBOPLATIN
     Indication: Breast cancer
     Dosage: 600 MILLIGRAM
     Route: 065
  2. CARBOPLATIN [Suspect]
     Active Substance: CARBOPLATIN
     Dosage: 450 MG DILUTED IN 500 ML NORMAL SALINE OVER 1 HOUR
     Route: 042
  3. DOCETAXEL [Suspect]
     Active Substance: DOCETAXEL
     Dosage: 120 MG DILUTED IN 250 ML NORMAL SALINE 0.9% OVER 1 HOUR
     Route: 042
     Dates: start: 20240408
  4. DOCETAXEL [Suspect]
     Active Substance: DOCETAXEL
     Indication: Breast cancer
     Dosage: 130 MILLIGRAM
     Route: 065
  5. PHESGO [Suspect]
     Active Substance: HYALURONIDASE-ZZXF\PERTUZUMAB\TRASTUZUMAB
     Indication: Breast cancer
     Dosage: UNKNOWN
     Route: 065

REACTIONS (7)
  - Neuropathy peripheral [Recovered/Resolved with Sequelae]
  - Bone pain [Recovered/Resolved with Sequelae]
  - Fatigue [Recovered/Resolved with Sequelae]
  - Taste disorder [Recovered/Resolved with Sequelae]
  - Diarrhoea [Unknown]
  - Vomiting [Unknown]
  - Skin lesion [Unknown]

NARRATIVE: CASE EVENT DATE: 20240703
